FAERS Safety Report 7314813-X (Version None)
Quarter: 2011Q1

REPORT INFORMATION
  Report Type: 
  Country: None (occurrence: None)
  Receive Date: 20110225
  Receipt Date: 20110104
  Transmission Date: 20110831
  Serious: No
  Sender: FDA-Public Use
  Company Number: US-MYLANLABS-2010S1023164

PATIENT
  Age: 15 Year
  Sex: Female
  Weight: 53.07 kg

DRUGS (2)
  1. AMNESTEEM [Suspect]
     Route: 048
     Dates: end: 20101201
  2. AMNESTEEM [Suspect]
     Indication: ACNE
     Route: 048
     Dates: start: 20101001, end: 20101201

REACTIONS (7)
  - ANXIETY [None]
  - BLOOD PRESSURE INCREASED [None]
  - NERVOUSNESS [None]
  - PANIC ATTACK [None]
  - HEADACHE [None]
  - TACHYCARDIA [None]
  - NAUSEA [None]
